FAERS Safety Report 11725432 (Version 1)
Quarter: 2015Q4

REPORT INFORMATION
  Report Type: Spontaneous
  Country: US (occurrence: US)
  Receive Date: 20151111
  Receipt Date: 20151111
  Transmission Date: 20160304
  Serious: No
  Sender: FDA-Public Use
  Company Number: US-UCBSA-2015023195

PATIENT
  Sex: Female

DRUGS (4)
  1. VIMPAT [Suspect]
     Active Substance: LACOSAMIDE
     Indication: SEIZURE
     Dosage: UNK
  2. ZONEGRAN [Concomitant]
     Active Substance: ZONISAMIDE
     Indication: SEIZURE
     Dosage: UNK
  3. BANZEL [Concomitant]
     Active Substance: RUFINAMIDE
     Indication: SEIZURE
     Dosage: UNK
  4. CLONAZEPAM. [Concomitant]
     Active Substance: CLONAZEPAM
     Indication: SEIZURE
     Dosage: UNK

REACTIONS (2)
  - Seizure [Unknown]
  - Irritability [Unknown]
